FAERS Safety Report 6028042-3 (Version None)
Quarter: 2008Q4

REPORT INFORMATION
  Report Type: 
  Country: None (occurrence: None)
  Receive Date: 20081231
  Receipt Date: 20081219
  Transmission Date: 20090506
  Serious: Yes (Hospitalization)
  Sender: FDA-Public Use
  Company Number: GXKR2008NL12163

PATIENT
  Age: 58 Year
  Sex: Male

DRUGS (6)
  1. CIPROFLOXACIN [Suspect]
     Indication: PNEUMONIA
     Dosage: 200 MG, BID, INTRAVENOUS
     Route: 042
  2. CIPROFLOXACIN [Suspect]
     Indication: URINARY TRACT INFECTION
     Dosage: 200 MG, BID, INTRAVENOUS
     Route: 042
  3. CLOZAPINE [Suspect]
     Dosage: 300 MG
  4. CLONAZEPAM [Concomitant]
  5. VALPROIC ACID (VALPROIC ACID) [Concomitant]
  6. HYDROCHLOROTHIAZIDE [Concomitant]

REACTIONS (6)
  - ALANINE AMINOTRANSFERASE INCREASED [None]
  - ASPARTATE AMINOTRANSFERASE INCREASED [None]
  - DRUG INTERACTION [None]
  - DRUG LEVEL INCREASED [None]
  - DRUG TOXICITY [None]
  - LIVER DISORDER [None]
